FAERS Safety Report 12880568 (Version 2)
Quarter: 2016Q4

REPORT INFORMATION
  Report Type: Report from Study
  Country: IT (occurrence: IT)
  Receive Date: 20161025
  Receipt Date: 20161026
  Transmission Date: 20170207
  Serious: Yes (Hospitalization)
  Sender: FDA-Public Use
  Company Number: IT-TEVA-705384ACC

PATIENT
  Age: 71 Year
  Sex: Male
  Weight: 66 kg

DRUGS (8)
  1. ERBITUX - 50 ML SOLUZIONE PER INFUSIONE [Concomitant]
     Indication: SQUAMOUS CELL CARCINOMA OF HEAD AND NECK
     Route: 042
     Dates: start: 20160330, end: 20160926
  2. KANRENOL - 25 MG COMPRESSE [Concomitant]
     Indication: PRODUCT USED FOR UNKNOWN INDICATION
  3. CONGESCOR - 1.25 MG COMPRESSE [Concomitant]
     Indication: HYPERTENSION
     Dosage: 1 DF
     Dates: start: 2000
  4. CISPLATINO ACCORD HEALTHCARE ITALIA - 1MG/ML [Suspect]
     Active Substance: CISPLATIN
     Indication: HEAD AND NECK CANCER METASTATIC
     Dosage: 174 MG CYCLICAL
     Route: 042
     Dates: start: 20160330, end: 20160410
  5. LASIX [Concomitant]
     Active Substance: FUROSEMIDE
     Indication: PRODUCT USED FOR UNKNOWN INDICATION
  6. FLUOROURACILE TEVA - 1 G/20 ML SOLUZIONE PER INFUSIONE [Suspect]
     Active Substance: FLUOROURACIL
     Indication: HEAD AND NECK CANCER METASTATIC
     Dosage: 6960 MG CYCLICAL
     Route: 042
     Dates: start: 20160330, end: 20160406
  7. ERBITUX - 50 ML SOLUZIONE PER INFUSIONE [Concomitant]
     Route: 042
     Dates: start: 20160404
  8. LANSOPRAZOLE. [Concomitant]
     Active Substance: LANSOPRAZOLE
     Indication: PRODUCT USED FOR UNKNOWN INDICATION
     Dosage: 30 MG

REACTIONS (3)
  - Febrile neutropenia [Recovered/Resolved]
  - Diarrhoea [Recovered/Resolved]
  - Thrombocytopenia [Recovered/Resolved]

NARRATIVE: CASE EVENT DATE: 20160410
